FAERS Safety Report 10210768 (Version 1)
Quarter: 2014Q2

REPORT INFORMATION
  Report Type: Spontaneous
  Country: US (occurrence: US)
  Receive Date: 20140602
  Receipt Date: 20140602
  Transmission Date: 20141212
  Serious: Yes (Death, Other)
  Sender: FDA-Public Use
  Company Number: US-ABBVIE-14P-163-1242948-00

PATIENT
  Sex: 0

DRUGS (1)
  1. ANDROGEL [Suspect]
     Indication: BLOOD TESTOSTERONE DECREASED
     Dates: start: 2007, end: 20131209

REACTIONS (12)
  - Myocardial infarction [Fatal]
  - Cardio-respiratory arrest [Fatal]
  - Arteriosclerosis [Fatal]
  - Pulmonary embolism [Recovered/Resolved]
  - Injury [Unknown]
  - Pain [Unknown]
  - Tension [Unknown]
  - Pain [Unknown]
  - Emotional distress [Unknown]
  - Asthenia [Unknown]
  - Deep vein thrombosis [Recovered/Resolved]
  - Deep vein thrombosis [Recovered/Resolved]
